FAERS Safety Report 25035943 (Version 1)
Quarter: 2025Q1

REPORT INFORMATION
  Report Type: Spontaneous
  Country: US (occurrence: None)
  Receive Date: 20250303
  Receipt Date: 20250303
  Transmission Date: 20250409
  Serious: Yes (Hospitalization)
  Sender: FDA-CTU
  Company Number: None

PATIENT
  Age: 59 Year
  Sex: Female
  Weight: 121.95 kg

DRUGS (1)
  1. DETECTNET [Suspect]
     Active Substance: COPPER OXODOTREOTIDE CU-64
     Indication: Neuroendocrine tumour
     Route: 040
     Dates: start: 20250303, end: 20250303

REACTIONS (6)
  - Flushing [None]
  - Chest discomfort [None]
  - Palpitations [None]
  - Abdominal pain [None]
  - Back pain [None]
  - Blood pressure increased [None]

NARRATIVE: CASE EVENT DATE: 20250303
